FAERS Safety Report 19935827 (Version 4)
Quarter: 2022Q4

REPORT INFORMATION
  Report Type: Report from Study
  Country: JP (occurrence: JP)
  Receive Date: 20211008
  Receipt Date: 20221004
  Transmission Date: 20230113
  Serious: Yes (Other)
  Sender: FDA-Public Use
  Company Number: JP-BIOGEN-2021BI01055677

PATIENT
  Age: 29 Year
  Sex: Female
  Weight: 56 kg

DRUGS (10)
  1. TECFIDERA [Suspect]
     Active Substance: DIMETHYL FUMARATE
     Indication: Relapsing-remitting multiple sclerosis
     Route: 050
     Dates: start: 20170510, end: 20170530
  2. TECFIDERA [Suspect]
     Active Substance: DIMETHYL FUMARATE
     Route: 050
     Dates: start: 20170531, end: 20170708
  3. TECFIDERA [Suspect]
     Active Substance: DIMETHYL FUMARATE
     Route: 050
     Dates: start: 20180220, end: 20180227
  4. TECFIDERA [Suspect]
     Active Substance: DIMETHYL FUMARATE
     Route: 050
     Dates: start: 20180228, end: 201806
  5. TECFIDERA [Suspect]
     Active Substance: DIMETHYL FUMARATE
     Route: 050
     Dates: start: 20190105, end: 20190111
  6. TECFIDERA [Suspect]
     Active Substance: DIMETHYL FUMARATE
     Route: 050
     Dates: start: 20190112
  7. MAGNESIUM OXIDE [Concomitant]
     Active Substance: MAGNESIUM OXIDE
     Indication: Constipation
     Route: 050
     Dates: start: 20170921
  8. OXYTOCIN [Concomitant]
     Active Substance: OXYTOCIN
     Indication: Delivery
     Dosage: 2 A
     Route: 050
  9. FLUMARIN [Concomitant]
     Indication: Delivery
     Dosage: 2 G
     Route: 050
  10. ACETAMINOPHEN [Concomitant]
     Active Substance: ACETAMINOPHEN
     Indication: Delivery
     Dosage: 1000 MG
     Route: 050

REACTIONS (3)
  - Nonreassuring foetal heart rate pattern [Unknown]
  - Bradycardia [Unknown]
  - Maternal exposure during pregnancy [Unknown]

NARRATIVE: CASE EVENT DATE: 20180217
